FAERS Safety Report 8366340-9 (Version None)
Quarter: 2012Q2

REPORT INFORMATION
  Report Type: 
  Country: None (occurrence: None)
  Receive Date: 20120517
  Receipt Date: 20120515
  Transmission Date: 20120825
  Serious: Yes (Hospitalization)
  Sender: FDA-Public Use
  Company Number: PHHY2012NL026648

PATIENT
  Sex: Male

DRUGS (4)
  1. ZOMETA [Suspect]
     Dosage: 4 MG/100ML, 1X PER 28 DAYS
     Dates: start: 20100325
  2. ZOMETA [Suspect]
     Dosage: 4 MG/100ML, 1X PER 28 DAYS
     Dates: start: 20120223
  3. ZOMETA [Suspect]
     Dosage: 4 MG/100ML, 1X PER 28 DAYS
     Dates: start: 20120406
  4. ZOMETA [Suspect]
     Indication: PROSTATE CANCER METASTATIC
     Dosage: 4 MG/100ML, 1X PER 28 DAYS

REACTIONS (1)
  - MALAISE [None]
